FAERS Safety Report 24353123 (Version 1)
Quarter: 2024Q3

REPORT INFORMATION
  Report Type: Spontaneous
  Country: CN (occurrence: CN)
  Receive Date: 20240923
  Receipt Date: 20240923
  Transmission Date: 20241016
  Serious: Yes (Disabling)
  Sender: JOHNSON AND JOHNSON
  Company Number: CN-JNJFOC-20240940305

PATIENT
  Age: 64 Year
  Sex: Female
  Weight: 72.5 kg

DRUGS (2)
  1. DARZALEX [Suspect]
     Active Substance: DARATUMUMAB
     Indication: Neoplasm malignant
     Route: 041
     Dates: start: 20240904, end: 20240904
  2. DARZALEX [Suspect]
     Active Substance: DARATUMUMAB
     Route: 041
     Dates: start: 20240904, end: 20240904

REACTIONS (1)
  - Myelosuppression [Recovering/Resolving]

NARRATIVE: CASE EVENT DATE: 20240905
